FAERS Safety Report 5522041-3 (Version None)
Quarter: 2007Q4

REPORT INFORMATION
  Report Type: 
  Country: None (occurrence: None)
  Receive Date: 20071120
  Receipt Date: 20071116
  Transmission Date: 20080405
  Serious: Yes (Other)
  Sender: FDA-Public Use
  Company Number: B0494928A

PATIENT
  Sex: Female

DRUGS (1)
  1. AQUAFRESH TOOTHPASTE [Suspect]

REACTIONS (3)
  - BURNING SENSATION [None]
  - GINGIVAL PRURITUS [None]
  - HAEMORRHAGE [None]
